FAERS Safety Report 9132919 (Version 1)
Quarter: 2013Q1

REPORT INFORMATION
  Report Type: Spontaneous
  Country: US (occurrence: US)
  Receive Date: 20130107
  Receipt Date: 20130107
  Transmission Date: 20140127
  Serious: Yes (Death)
  Sender: FDA-Public Use
  Company Number: US-ASTRAZENECA-2013SE00458

PATIENT
  Age: 30 Year
  Sex: Male

DRUGS (4)
  1. QUETIAPINE [Suspect]
     Route: 048
  2. TRAMADOL [Suspect]
     Route: 048
  3. VENLAFAXINE [Suspect]
     Route: 048
  4. CYCLOBENZAPRINE [Suspect]
     Route: 048

REACTIONS (2)
  - Completed suicide [Fatal]
  - Toxicity to various agents [Fatal]
